FAERS Safety Report 5836059-4 (Version None)
Quarter: 2008Q3

REPORT INFORMATION
  Report Type: 
  Country: None (occurrence: None)
  Receive Date: 20080806
  Receipt Date: 20080729
  Transmission Date: 20090109
  Serious: Yes (Other)
  Sender: FDA-Public Use
  Company Number: US-PFIZER INC-2008063419

PATIENT
  Sex: Female
  Weight: 72.6 kg

DRUGS (11)
  1. LIPITOR [Suspect]
     Indication: BLOOD CHOLESTEROL INCREASED
     Dates: start: 20080723, end: 20080729
  2. SPIRIVA [Concomitant]
  3. ALL OTHER THERAPEUTIC PRODUCTS [Concomitant]
  4. ACETYLSALICYLIC ACID SRT [Concomitant]
  5. ANTACID TAB [Concomitant]
  6. METFORMIN HCL [Concomitant]
  7. LINSEED OIL [Concomitant]
  8. CINNAMON [Concomitant]
  9. FISH OIL [Concomitant]
  10. LISINOPRIL [Concomitant]
  11. GARLIC [Concomitant]

REACTIONS (9)
  - ATAXIA [None]
  - DYSPHONIA [None]
  - DYSPNOEA [None]
  - ERYTHEMA [None]
  - GAIT DISTURBANCE [None]
  - MUSCULOSKELETAL STIFFNESS [None]
  - OEDEMA PERIPHERAL [None]
  - SPEECH DISORDER [None]
  - URTICARIA [None]
